FAERS Safety Report 23259283 (Version 1)
Quarter: 2023Q4

REPORT INFORMATION
  Report Type: Spontaneous
  Country: US (occurrence: None)
  Receive Date: 20231204
  Receipt Date: 20231204
  Transmission Date: 20240110
  Serious: Yes (Hospitalization)
  Sender: FDA-Public Use
  Company Number: None

PATIENT
  Age: 75 Year
  Sex: Male

DRUGS (1)
  1. CEFEPIME HYDROCHLORIDE [Suspect]
     Active Substance: CEFEPIME HYDROCHLORIDE
     Dates: start: 20231016, end: 20231018

REACTIONS (9)
  - Confusional state [None]
  - Cough [None]
  - Dyspnoea [None]
  - Hypercalcaemia [None]
  - Mental status changes [None]
  - Pulmonary mass [None]
  - Metastases to bone [None]
  - Metastases to liver [None]
  - Pulmonary embolism [None]

NARRATIVE: CASE EVENT DATE: 20231019
